FAERS Safety Report 18823741 (Version 1)
Quarter: 2021Q1

REPORT INFORMATION
  Report Type: Spontaneous
  Country: US (occurrence: US)
  Receive Date: 20210201
  Receipt Date: 20210201
  Transmission Date: 20210419
  Serious: No
  Sender: FDA-Public Use
  Company Number: US-ABBVIE-20K-163-3251404-00

PATIENT
  Age: 25 Year
  Sex: Female
  Weight: 81.72 kg

DRUGS (5)
  1. FOLIC ACID. [Concomitant]
     Active Substance: FOLIC ACID
     Indication: MIGRAINE
  2. CABERGOLINE. [Concomitant]
     Active Substance: CABERGOLINE
     Indication: BRAIN NEOPLASM
  3. HUMIRA [Suspect]
     Active Substance: ADALIMUMAB
     Route: 058
     Dates: start: 20191111
  4. HUMIRA [Suspect]
     Active Substance: ADALIMUMAB
     Indication: RHEUMATOID ARTHRITIS
     Route: 058
     Dates: start: 201908, end: 20191017
  5. FOLIC ACID. [Concomitant]
     Active Substance: FOLIC ACID
     Indication: HYPOTENSION

REACTIONS (4)
  - Swelling [Recovered/Resolved]
  - Hangnail [Recovered/Resolved]
  - Device issue [Recovered/Resolved]
  - Nail infection [Recovered/Resolved]

NARRATIVE: CASE EVENT DATE: 20191022
